FAERS Safety Report 26161988 (Version 1)
Quarter: 2025Q4

REPORT INFORMATION
  Report Type: Spontaneous
  Country: US (occurrence: None)
  Receive Date: 20251216
  Receipt Date: 20251216
  Transmission Date: 20260119
  Serious: No
  Sender: UCB
  Company Number: US-UCBSA-2025068392

PATIENT
  Age: 54 Year
  Weight: 83 kg

DRUGS (1)
  1. BIMZELX [Suspect]
     Active Substance: BIMEKIZUMAB-BKZX
     Indication: Psoriatic arthropathy
     Dosage: 160 MILLIGRAM, EV 4 WEEKS
     Route: 065

REACTIONS (5)
  - Depression [Unknown]
  - Stomatitis [Unknown]
  - Glossitis [Unknown]
  - Oral mucosal blistering [Unknown]
  - Product dose omission issue [Unknown]
